FAERS Safety Report 4282206-8 (Version None)
Quarter: 2004Q1

REPORT INFORMATION
  Report Type: 
  Country: None (occurrence: None)
  Receive Date: 20040130
  Receipt Date: 20031120
  Transmission Date: 20041129
  Serious: Yes (Disabling)
  Sender: FDA-Public Use
  Company Number: IT-GLAXOSMITHKLINE-B0315770A

PATIENT
  Age: 40 Year
  Sex: Male
  Weight: 73.8 kg

DRUGS (4)
  1. TRIZIVIR [Suspect]
     Indication: HIV INFECTION
     Dosage: 1TAB TWICE PER DAY
     Route: 048
     Dates: start: 20031111, end: 20031115
  2. EFAVIRENZ [Suspect]
     Indication: HIV INFECTION
     Dosage: 600MG PER DAY
     Route: 048
     Dates: start: 20031111, end: 20031115
  3. INSULIN LISPRO [Concomitant]
     Indication: DIABETES MELLITUS INSULIN-DEPENDENT
     Dosage: 18UNIT THREE TIMES PER DAY
     Route: 058
  4. HUMAN SHORT-ACTING INSULIN [Concomitant]
     Indication: DIABETES MELLITUS INSULIN-DEPENDENT
     Dosage: 5UNIT PER DAY
     Route: 058

REACTIONS (2)
  - CONFUSIONAL STATE [None]
  - DISORIENTATION [None]
